FAERS Safety Report 4461010-1 (Version None)
Quarter: 2004Q3

REPORT INFORMATION
  Report Type: 
  Country: None (occurrence: None)
  Receive Date: 20040928
  Receipt Date: 20040628
  Transmission Date: 20050211
  Serious: No
  Sender: FDA-Public Use
  Company Number: US-GLAXOSMITHKLINE-A0516222A

PATIENT
  Age: 72 Year
  Sex: Male

DRUGS (11)
  1. ADVAIR DISKUS 100/50 [Suspect]
     Dosage: 1PUFF TWICE PER DAY
     Route: 055
  2. ALBUTEROL [Concomitant]
  3. CHLORPHENIRAMINE MALEATE AND PSEUDOEPHEDRINE HCL [Concomitant]
  4. CARDURA [Concomitant]
  5. REGULAR INSULIN [Concomitant]
  6. LASIX [Concomitant]
  7. NPH INSULIN [Concomitant]
  8. POTASSIUM [Concomitant]
  9. ZOCOR [Concomitant]
  10. NEURONTIN [Concomitant]
  11. ASPIRIN [Concomitant]

REACTIONS (1)
  - BLOOD GLUCOSE INCREASED [None]
